FAERS Safety Report 6861034-0 (Version None)
Quarter: 2010Q3

REPORT INFORMATION
  Report Type: 
  Country: None (occurrence: None)
  Receive Date: 20100720
  Receipt Date: 20100712
  Transmission Date: 20110219
  Serious: Yes (Hospitalization, Other)
  Sender: FDA-Public Use
  Company Number: US-PFIZER INC-2010088398

PATIENT
  Age: 52 Year
  Sex: Male

DRUGS (3)
  1. METRONIDAZOLE [Suspect]
  2. DAPTOMYCIN [Concomitant]
  3. CEFEPIME [Concomitant]

REACTIONS (1)
  - CEREBELLAR ATAXIA [None]
